FAERS Safety Report 6521116-X (Version None)
Quarter: 2009Q4

REPORT INFORMATION
  Report Type: 
  Country: None (occurrence: None)
  Receive Date: 20091229
  Receipt Date: 20091222
  Transmission Date: 20100525
  Serious: Yes (Other)
  Sender: FDA-Public Use
  Company Number: US-ELI_LILLY_AND_COMPANY-US200912005141

PATIENT
  Sex: Male

DRUGS (3)
  1. HUMULIN N [Suspect]
     Indication: DIABETES MELLITUS
     Dosage: 10 U, EACH MORNING
     Dates: start: 19890101
  2. HUMULIN N [Suspect]
     Dosage: 10 U, EACH EVENING
     Dates: start: 19890101
  3. NOVOLIN [Concomitant]
     Dosage: 15 U, OTHER
     Dates: start: 20091222, end: 20091222

REACTIONS (3)
  - COMA [None]
  - TOE AMPUTATION [None]
  - WRONG DRUG ADMINISTERED [None]
